FAERS Safety Report 6876217-3 (Version None)
Quarter: 2010Q3

REPORT INFORMATION
  Report Type: 
  Country: None (occurrence: None)
  Receive Date: 20100727
  Receipt Date: 20100708
  Transmission Date: 20110219
  Serious: Yes (Hospitalization)
  Sender: FDA-Public Use
  Company Number: A0866977A

PATIENT
  Age: 59 Year
  Sex: Male

DRUGS (7)
  1. AVANDIA [Suspect]
     Dosage: 8MG PER DAY
     Route: 048
     Dates: start: 20020301, end: 20070529
  2. TOPROL-XL [Concomitant]
  3. LIPITOR [Concomitant]
  4. GLYBURIDE [Concomitant]
  5. ENALAPRIL MALEATE [Concomitant]
  6. FLOMAX [Concomitant]
  7. GLUCOPHAGE [Concomitant]

REACTIONS (1)
  - MYOCARDIAL INFARCTION [None]
